FAERS Safety Report 8211421-3 (Version None)
Quarter: 2012Q1

REPORT INFORMATION
  Report Type: 
  Country: None (occurrence: None)
  Receive Date: 20120315
  Receipt Date: 20120309
  Transmission Date: 20120608
  Serious: Yes (Hospitalization)
  Sender: FDA-Public Use
  Company Number: FR-PFIZER INC-2012062710

PATIENT
  Age: 59 Year
  Sex: Female

DRUGS (16)
  1. OXALIPLATIN [Suspect]
     Indication: FOLLICLE CENTRE LYMPHOMA, FOLLICULAR GRADE I, II, III
     Dosage: 1ST COURSE
     Dates: start: 20111013
  2. DEXAMETHASONE [Suspect]
     Dosage: 2ND COURSE
     Dates: start: 20111104
  3. MABTHERA [Suspect]
     Dosage: 2ND COURSE
     Route: 042
     Dates: start: 20111104
  4. CYTARABINE [Suspect]
     Dosage: 3RD COURSE
     Route: 042
     Dates: start: 20111125
  5. OXALIPLATIN [Suspect]
     Dosage: 3RD COURSE
     Dates: start: 20111125
  6. OXALIPLATIN [Suspect]
     Dosage: 150 MG (100 MG/M2), 1X/DAY
     Dates: start: 20111215, end: 20111215
  7. DEXAMETHASONE [Suspect]
     Indication: FOLLICLE CENTRE LYMPHOMA, FOLLICULAR GRADE I, II, III
     Dosage: 1ST COURSE
     Dates: start: 20111013
  8. MABTHERA [Suspect]
     Indication: FOLLICLE CENTRE LYMPHOMA, FOLLICULAR GRADE I, II, III
     Dosage: 1ST COURSE
     Route: 042
     Dates: start: 20111013
  9. MABTHERA [Suspect]
     Dosage: 3RD COURSE
     Route: 042
     Dates: start: 20111125
  10. OXALIPLATIN [Suspect]
     Dosage: 2ND COURSE
     Dates: start: 20111104
  11. DEXAMETHASONE [Suspect]
     Dosage: 3RD COURSE
     Dates: start: 20111125
  12. CYTARABINE [Suspect]
     Dosage: 2ND COURSE
     Route: 042
     Dates: start: 20111104
  13. DEXAMETHASONE [Suspect]
     Dosage: 20 MG, 1X/DAY
     Dates: start: 20111215, end: 20111218
  14. MABTHERA [Suspect]
     Dosage: 600 MG, 1X/DAY
     Route: 042
     Dates: start: 20111215, end: 20111215
  15. CYTARABINE [Suspect]
     Indication: FOLLICLE CENTRE LYMPHOMA, FOLLICULAR GRADE I, II, III
     Dosage: 1ST COUSE
     Route: 042
     Dates: start: 20111013
  16. CYTARABINE [Suspect]
     Dosage: 3100 MG (2000 MG/M2), 1X/DAY
     Route: 042
     Dates: start: 20111215, end: 20111215

REACTIONS (3)
  - HYPOTENSION [None]
  - HYPOXIA [None]
  - PYREXIA [None]
